FAERS Safety Report 6495056-9 (Version None)
Quarter: 2009Q4

REPORT INFORMATION
  Report Type: 
  Country: None (occurrence: None)
  Receive Date: 20091214
  Receipt Date: 20090424
  Transmission Date: 20100525
  Serious: No
  Sender: FDA-Public Use
  Company Number: US-BRISTOL-MYERS SQUIBB COMPANY-14600431

PATIENT
  Age: 4 Decade
  Sex: Male

DRUGS (4)
  1. ABILIFY [Suspect]
     Dosage: DRUG WAS STOPPED IN UNK DATE AND RESTARTED
  2. LITHIUM [Suspect]
     Indication: DEPRESSION
  3. WELLBUTRIN [Suspect]
     Indication: DEPRESSION
  4. CRESTOR [Suspect]

REACTIONS (1)
  - HEPATIC ENZYME INCREASED [None]
